FAERS Safety Report 13567820 (Version 1)
Quarter: 2017Q2

REPORT INFORMATION
  Report Type: Spontaneous
  Country: FR (occurrence: FR)
  Receive Date: 20170522
  Receipt Date: 20170522
  Transmission Date: 20170830
  Serious: Yes (Hospitalization)
  Sender: FDA-Public Use
  Company Number: FR-OTSUKA-2017_011008

PATIENT
  Age: 60 Year
  Sex: Male

DRUGS (4)
  1. JINARC [Suspect]
     Active Substance: TOLVAPTAN
     Dosage: 30 MG, QD (IN EVENING)
     Route: 048
     Dates: start: 201705
  2. JINARC [Suspect]
     Active Substance: TOLVAPTAN
     Dosage: 15 MG, QD (IN EVENING)
     Route: 048
     Dates: start: 201701, end: 201705
  3. JINARC [Suspect]
     Active Substance: TOLVAPTAN
     Indication: PRODUCT USED FOR UNKNOWN INDICATION
     Dosage: 60 MG, QD (IN MORNING)
     Route: 048
     Dates: start: 201705
  4. JINARC [Suspect]
     Active Substance: TOLVAPTAN
     Dosage: 45 MG, QD (IN MORNING)
     Route: 048
     Dates: start: 201701, end: 201705

REACTIONS (1)
  - Faecaloma [Not Recovered/Not Resolved]

NARRATIVE: CASE EVENT DATE: 201705
